FAERS Safety Report 7989140-8 (Version None)
Quarter: 2011Q4

REPORT INFORMATION
  Report Type: 
  Country: None (occurrence: None)
  Receive Date: 20111219
  Receipt Date: 20111209
  Transmission Date: 20120403
  Serious: Yes (Other)
  Sender: FDA-Public Use
  Company Number: CN-GENZYME-CERZ-1002323

PATIENT
  Sex: Male
  Weight: 25 kg

DRUGS (3)
  1. CEREZYME [Suspect]
     Dosage: 800 U, Q2W
     Route: 042
     Dates: start: 20060901, end: 20090816
  2. CEREZYME [Suspect]
     Indication: GAUCHER'S DISEASE
     Dosage: 400 U, UNK
     Route: 042
     Dates: start: 20111128, end: 20111128
  3. CEREZYME [Suspect]
     Dosage: 800 U, Q4W
     Route: 042
     Dates: start: 20090816

REACTIONS (3)
  - SYNCOPE [None]
  - CONVULSION [None]
  - TREMOR [None]
